FAERS Safety Report 5218658-6 (Version None)
Quarter: 2007Q1

REPORT INFORMATION
  Report Type: 
  Country: None (occurrence: None)
  Receive Date: 20070122
  Receipt Date: 20070111
  Transmission Date: 20070707
  Serious: Yes (Other)
  Sender: FDA-Public Use
  Company Number: B0454561A

PATIENT
  Age: 87 Year
  Sex: Female

DRUGS (1)
  1. AUGMENTIN '125' [Suspect]

REACTIONS (2)
  - CHOLESTASIS [None]
  - HEPATOTOXICITY [None]
